FAERS Safety Report 7544974-9 (Version None)
Quarter: 2011Q2

REPORT INFORMATION
  Report Type: 
  Country: None (occurrence: None)
  Receive Date: 20110614
  Receipt Date: 20090501
  Transmission Date: 20111010
  Serious: Yes (Hospitalization, Other)
  Sender: FDA-Public Use
  Company Number: US-BAYER-200920200NA

PATIENT
  Age: 70 Year
  Sex: Female
  Weight: 79 kg

DRUGS (72)
  1. LEVOXYL [Concomitant]
     Dosage: 50-75 MCG QD
     Route: 048
     Dates: start: 19980811
  2. BENADRYL [Concomitant]
     Dosage: 25 MG, UNK
     Route: 042
     Dates: start: 20051012, end: 20051012
  3. FENTANYL [Concomitant]
     Dosage: 100 MCG, UNK
     Route: 042
     Dates: start: 20051012, end: 20051012
  4. HESPAN IN EXCEL PLASTIC CONTAINER [Concomitant]
     Indication: FLUID REPLACEMENT
     Dosage: 50 ML, UNK
     Route: 042
     Dates: start: 20051013, end: 20051013
  5. PAPAVERINE [Concomitant]
     Dosage: 10 ML, UNK
     Route: 061
     Dates: start: 20051013, end: 20051013
  6. TRASYLOL [Suspect]
     Dosage: 200 ML, UNK
     Route: 042
     Dates: start: 20051013, end: 20051013
  7. LASIX [Concomitant]
     Dosage: 20-40 MG DAILY AS NEEDED
     Dates: start: 20030926
  8. POTASSIUM CHLORIDE [Concomitant]
     Dosage: 40 MILLEQUIVALENTS, UNK
     Route: 048
     Dates: start: 20051011, end: 20051217
  9. POTASSIUM CHLORIDE [Concomitant]
     Dosage: 20 MILLEQUIVALENTS, UNK
     Route: 042
     Dates: start: 20051013, end: 20051217
  10. FENTANYL [Concomitant]
     Dosage: 50-500 MCG, UNK
     Route: 042
     Dates: start: 20051013, end: 20051013
  11. PROTAMINE SULFATE [Concomitant]
     Dosage: 300 MG, UNK
     Route: 042
     Dates: start: 20051013
  12. MILRINONE [Concomitant]
     Dosage: 0.5 MCG/KG/MINUTES; 0.25-0.5 MG, UNK
     Route: 042
     Dates: start: 20051013, end: 20051013
  13. NITROGLYCERIN [Concomitant]
     Dosage: 0.1 MG, UNK
     Route: 042
     Dates: start: 20051013, end: 20051013
  14. CALCIUM GLUCONATE [Concomitant]
     Dosage: 1-2 AMPULES, UNK
     Route: 042
     Dates: start: 20051013, end: 20051016
  15. TRASYLOL [Suspect]
     Dosage: 250 ML PUMP PRIME, UNK
     Route: 042
     Dates: start: 20051013, end: 20051013
  16. LISINOPRIL [Concomitant]
     Indication: HYPERTENSION
     Dosage: 10 MG, UNK
     Route: 048
     Dates: start: 19940101
  17. ZOCOR [Concomitant]
     Dosage: 40-80 MG HS
     Route: 048
     Dates: start: 19970628
  18. LANTUS [Concomitant]
     Dosage: 1-30 UNITS AT BEDTIME AS NEEDED
     Route: 058
     Dates: start: 20040820
  19. LIQUIBID-D [Concomitant]
     Dosage: 40/1200 MG, UNK
     Route: 048
     Dates: start: 20050721
  20. LOSARTAN POTASSIUM [Concomitant]
     Dosage: 100 MG, QD
     Route: 048
     Dates: start: 20051011
  21. LIDOCAINE [Concomitant]
     Dosage: 15 ML, UNK
     Dates: start: 20051012, end: 20051012
  22. BACTROBAN [Concomitant]
     Dosage: TWICE DAILY TO EACH NOSTRIL
     Route: 061
     Dates: start: 20051012, end: 20051021
  23. PLASMALYTE [GLUCOSE,POTASSIUM CHLORIDE] [Concomitant]
     Dosage: 1000 ML, UNK
     Dates: start: 20051013, end: 20051013
  24. TRASYLOL [Suspect]
     Dosage: 50 ML/HR, UNK
     Route: 042
     Dates: start: 20051013, end: 20051013
  25. ACETYLSALICYLIC ACID SRT [Concomitant]
     Dosage: 325 MG, QD WITH FOOD
     Route: 048
     Dates: start: 20030122
  26. ZETIA [Concomitant]
     Dosage: 10 MG, HS
     Route: 048
     Dates: start: 20040528
  27. HEPARIN [Concomitant]
     Indication: COAGULATION TIME PROLONGED
     Dosage: UNK
     Route: 042
     Dates: start: 20051013
  28. ALBUMIN (HUMAN) [Concomitant]
     Indication: FLUID REPLACEMENT
     Dosage: 12.5 GRAMS, UNK
     Route: 042
     Dates: start: 20051013, end: 20051014
  29. PROPOFOL [Concomitant]
     Dosage: 10-60 ML/HOUR; 100 MG, UNK
     Route: 042
     Dates: start: 20051013, end: 20051027
  30. NORVASC [Concomitant]
     Dosage: 2.5-10 MG DAILY
     Route: 048
     Dates: start: 20011115
  31. VYTORIN [Concomitant]
     Dosage: 10-12.5/40-80 NIGHTLY
     Route: 048
     Dates: start: 20050714, end: 20090511
  32. KETEK [Concomitant]
     Dosage: 400 MG, UNK
     Route: 048
     Dates: start: 20050805
  33. REGULAR INSULIN [Concomitant]
     Dosage: 4-30 UNITS/HOUR, UNK
     Route: 042
     Dates: start: 20051013, end: 20051016
  34. NOVOLIN N [Concomitant]
     Dosage: 15 U, HS
     Route: 058
     Dates: start: 20051012
  35. LIDOCAINE [Concomitant]
     Dosage: 100 MG, UNK
     Route: 042
     Dates: start: 20051013, end: 20051013
  36. VASOPRESSIN [Concomitant]
     Dosage: 1.5 UNITS X 5, UNK
     Route: 042
     Dates: start: 20051013, end: 20051013
  37. SODIUM BICARBONATE [Concomitant]
     Dosage: 650 MG, UNK
     Route: 042
     Dates: start: 20051013, end: 20051016
  38. HYZAAR [Concomitant]
     Dosage: 50-100/12.2-25 MG DAILY
     Route: 048
     Dates: start: 20030425
  39. METOPROLOL SUCCINATE [Concomitant]
     Indication: BLOOD PRESSURE SYSTOLIC DECREASED
     Dosage: 25-50 MG BID DAILY TO EVERY 6 HOURS
     Route: 048
     Dates: start: 20030527
  40. PEPCID [Concomitant]
     Dosage: 20 MG DAILY TO TWICE DAILY
     Route: 048
     Dates: start: 20030527
  41. PLAVIX [Concomitant]
     Dosage: 75 MG, QD
     Route: 048
     Dates: start: 20030528
  42. REGULAR INSULIN [Concomitant]
     Dosage: 4-30 UNITS/HOUR SLIDING SCALE
     Route: 058
     Dates: start: 20051011
  43. LOVENOX [Concomitant]
     Dosage: 1 MG/KG EVERY 12 HOURS
     Route: 058
     Dates: start: 20051011, end: 20051225
  44. VERSED [Concomitant]
     Dosage: 2 MG, UNK
     Route: 042
     Dates: start: 20051012, end: 20051012
  45. VERSED [Concomitant]
     Dosage: 1-2 MG, UNK
     Route: 042
     Dates: start: 20051013, end: 20051212
  46. EPINEPHRINE [Concomitant]
     Dosage: 2 MG, UNK
     Route: 042
     Dates: start: 20051013, end: 20051013
  47. MANNITOL [Concomitant]
     Dosage: 8.2 GRAMS, UNK
     Route: 042
     Dates: start: 20051013, end: 20051013
  48. METHYLENE BLUE [Concomitant]
     Dosage: 10 ML, UNK
     Route: 061
     Dates: start: 20051013, end: 20051013
  49. ROPIVACAINE HYDROCHLORIDE [Concomitant]
     Dosage: 20 ML, UNK
     Dates: start: 20051013, end: 20051013
  50. ANCEF [Concomitant]
     Dosage: 1 GRAMS X 2, UNK
     Route: 042
     Dates: start: 20051013, end: 20051014
  51. PHENYLEPHRINE HYDROCHLORIDE [Concomitant]
     Dosage: 0.1-0.3 MG; 30-50 ML/HOUR, UNK
     Route: 042
     Dates: start: 20051013, end: 20051016
  52. TRASYLOL [Suspect]
     Indication: CORONARY ARTERY BYPASS
     Dosage: 1 ML, UNK
     Route: 042
     Dates: start: 20051013, end: 20051013
  53. NOVOLOG [Concomitant]
     Dosage: 15-12 UNITS BEFORE MEALS
     Route: 058
     Dates: start: 20040820
  54. LEVAQUIN [Concomitant]
     Dosage: 500 MG, UNK
     Route: 048
     Dates: start: 20050714
  55. MUCOMYST [Concomitant]
     Dosage: 600 MG, BID
     Route: 048
     Dates: start: 20051011
  56. AMBIEN [Concomitant]
     Indication: INSOMNIA
     Dosage: 5 MG, HS AS NEEDED
     Route: 048
     Dates: start: 20051012, end: 20051013
  57. ZOFRAN [Concomitant]
     Indication: NAUSEA
     Dosage: 4 MG EVERY 6 HOURS AS NEEDED
     Route: 042
     Dates: start: 20051012, end: 20051212
  58. PERIDEX [Concomitant]
     Dosage: 15 ML, SWISH AND GARGLE X 30 SECONDS
     Route: 048
     Dates: start: 20051013, end: 20051013
  59. MORPHINE [Concomitant]
     Dosage: 1-10 MG, UNK
     Route: 042
     Dates: start: 20051013
  60. CALCIUM CHLORIDE [Concomitant]
     Dosage: 0.6 GRAMS, UNK
     Route: 042
     Dates: start: 20051013, end: 20051013
  61. GENTAMICIN [Concomitant]
     Dosage: 80 MG, UNK
     Dates: start: 20051013, end: 20051013
  62. MAGNESIUM SULFATE [Concomitant]
     Dosage: 1-4 GRAMS, UNK
     Route: 042
     Dates: start: 20051013, end: 20051013
  63. ROPIVACAINE HYDROCHLORIDE [Concomitant]
     Dosage: 30 ML, UNK
     Dates: start: 20051013, end: 20051013
  64. THROMBIN LOCAL SOLUTION [Concomitant]
     Dosage: 10, 000 UNITS, UNK
     Route: 061
     Dates: start: 20051013, end: 20051013
  65. FENOLDOPAM [Concomitant]
     Dosage: 40 MCG/ML, UNK
     Route: 042
     Dates: start: 20051013, end: 20051016
  66. HYDROCHLOROTHIAZIDE [Concomitant]
     Dosage: 12.5 MG DAILY TO EVERY OTHER DAY AS NEEDED
     Route: 048
     Dates: start: 20000221
  67. OXYCODONE [Concomitant]
     Indication: PAIN
     Dosage: 5 MG, 1-2 TABLETS EVERY 3 HOURS AS NEEDED
     Route: 048
     Dates: start: 20030527
  68. NITROGLYCERIN [Concomitant]
     Indication: BLOOD PRESSURE SYSTOLIC DECREASED
     Dosage: 1 INCH EVERY 6 HOURS [INTERMITTENT USE
     Route: 061
     Dates: start: 20030528
  69. COMPAZINE [Concomitant]
     Indication: NAUSEA
     Dosage: 10 MG EVERY 6 HOURS AS NEEDED
     Route: 042
     Dates: start: 20051012
  70. MYLANTA [ALUMINIUM HYDROXIDE GEL, DRIED,MAGNESIUM HYDROXIDE,SIMETICONE [Concomitant]
     Indication: DYSPEPSIA
     Dosage: 30 ML EVERY HOUR AS NEEDED
     Route: 048
     Dates: start: 20051012, end: 20051116
  71. SUCCINYLCHOLINE CHLORIDE [Concomitant]
     Dosage: 140 MG, UNK
     Route: 042
     Dates: start: 20051013, end: 20051013
  72. VECURONIUM BROMIDE [Concomitant]
     Dosage: 1-10 MG, UNK
     Route: 042
     Dates: start: 20051013, end: 20051016

REACTIONS (11)
  - FEAR [None]
  - EMOTIONAL DISTRESS [None]
  - RENAL INJURY [None]
  - STRESS [None]
  - UNEVALUABLE EVENT [None]
  - ANXIETY [None]
  - ANHEDONIA [None]
  - INJURY [None]
  - RENAL FAILURE [None]
  - RENAL IMPAIRMENT [None]
  - PAIN [None]
